FAERS Safety Report 16531868 (Version 2)
Quarter: 2019Q3

REPORT INFORMATION
  Report Type: Spontaneous
  Country: DE (occurrence: DE)
  Receive Date: 20190704
  Receipt Date: 20190912
  Transmission Date: 20191004
  Serious: Yes (Congenital Anomaly, Other)
  Sender: FDA-Public Use
  Company Number: DE-AUROBINDO-AUR-APL-2012-03958

PATIENT

DRUGS (18)
  1. LAMOTRIGINE AUROBINDO TABLETS 25MG [Suspect]
     Active Substance: LAMOTRIGINE
     Dosage: 250 MILLIGRAM, DAILY (GESTATIONAL WEEK: 10-12)
     Route: 064
     Dates: start: 2011, end: 2011
  2. LAMOTRIGINE AUROBINDO TABLETS 25MG [Suspect]
     Active Substance: LAMOTRIGINE
     Dosage: UNK
     Route: 064
     Dates: start: 2011, end: 20111202
  3. VIMPAT [Suspect]
     Active Substance: LACOSAMIDE
     Dosage: DOSE: 50 M, GESTATIONAL WEEK: 14-15
     Route: 064
     Dates: start: 2011, end: 2011
  4. VIMPAT [Suspect]
     Active Substance: LACOSAMIDE
     Dosage: 250 MILLIGRAM, DAILY
     Route: 064
     Dates: start: 201103, end: 2011
  5. LAMOTRIGINE AUROBINDO TABLETS 25MG [Suspect]
     Active Substance: LAMOTRIGINE
     Dosage: 225 MILLIGRAM, DAILY (GESTATIONAL WEEK: 10-11)
     Route: 064
     Dates: start: 2011, end: 2011
  6. VIMPAT [Suspect]
     Active Substance: LACOSAMIDE
     Indication: EPILEPSY
     Dosage: UNK UNK,DAILY,,10-11GW:250 MG/DAY, 11-12GW:200 MG/DAY, 12-13GW:150 MG/DAY, 13-14GW:100 MG/DAY AND 14
     Route: 064
     Dates: start: 20110218, end: 20111202
  7. VIMPAT [Suspect]
     Active Substance: LACOSAMIDE
     Dosage: 250 [MG/D ]/ GW 10-11: 250MG/D; GW 11-12: 200MG/D; GW 12-13:150MG/D; GW 13-14:100MG/D; GW 14-15: 50M
     Route: 064
     Dates: start: 2011, end: 20111202
  8. ZEBINIX [Concomitant]
     Active Substance: ESLICARBAZEPINE ACETATE
     Dosage: 200 MILLIGRAM, DAILY, GESTATIONAL WEEK: 0-4.5
     Route: 064
     Dates: start: 201103, end: 20110323
  9. LAMOTRIGINE AUROBINDO TABLETS 25MG [Suspect]
     Active Substance: LAMOTRIGINE
     Dosage: 275 MILLIGRAM, DAILY (GESTATIONAL WEEK: 12-13)
     Route: 064
     Dates: start: 2011, end: 2011
  10. VIMPAT [Suspect]
     Active Substance: LACOSAMIDE
     Dosage: 100 MILLIGRAM, DAILY (GESTATIONAL WEEK: 13-14)
     Route: 064
     Dates: start: 2011, end: 2011
  11. ZEBINIX [Concomitant]
     Active Substance: ESLICARBAZEPINE ACETATE
     Indication: EPILEPSY
     Dosage: 200 MILLIGRAM, DAILY
     Route: 064
     Dates: start: 20110218, end: 20110323
  12. LAMOTRIGINE AUROBINDO TABLETS 25MG [Suspect]
     Active Substance: LAMOTRIGINE
     Dosage: 300 MILLIGRAM, DAILY (GESTATIONAL WEEK: 13-15)
     Route: 064
     Dates: start: 2011, end: 2011
  13. LAMOTRIGINE AUROBINDO TABLETS 25MG [Suspect]
     Active Substance: LAMOTRIGINE
     Indication: EPILEPSY
     Dosage: UNK UNK,DAILY,,10-11GW:225 MG/DAY, 10-12GW:250 MG/DAY, 12-13GW:275 MG/DAY, 13-15:300 MG/DAY
     Route: 064
     Dates: start: 20110218, end: 20111202
  14. LAMOTRIGINE AUROBINDO TABLETS 25MG [Suspect]
     Active Substance: LAMOTRIGINE
     Dosage: 300 MILLIGRAM, DAILY
     Route: 064
     Dates: start: 201103, end: 2011
  15. VIMPAT [Suspect]
     Active Substance: LACOSAMIDE
     Dosage: 200 MILLIGRAM, DAILY (GESTATIONAL WEEK: 11-12)
     Route: 064
     Dates: start: 2011, end: 2011
  16. VIMPAT [Suspect]
     Active Substance: LACOSAMIDE
     Dosage: 250 MILLIGRAM, DAILY (GESTATIONAL WEEK: 10-11)
     Route: 064
     Dates: start: 2011, end: 2011
  17. FOLIO FORTE [Concomitant]
     Active Substance: FOLIC ACID\VITAMINS
     Indication: PROPHYLAXIS OF NEURAL TUBE DEFECT
     Dosage: 0.4 MILLIGRAM, TWO TIMES A DAY, GASTATIONAL WEEK: 8.3-41
     Route: 064
     Dates: start: 20110418, end: 20111202
  18. VIMPAT [Suspect]
     Active Substance: LACOSAMIDE
     Dosage: 150 MILLIGRAM, DAILY (GESTATIONAL WEEK: 12-13)
     Route: 064
     Dates: start: 2011, end: 2011

REACTIONS (4)
  - Foetal exposure during pregnancy [Unknown]
  - Atrial septal defect [Recovered/Resolved]
  - Directional Doppler flow tests abnormal [Recovered/Resolved]
  - Small for dates baby [Unknown]

NARRATIVE: CASE EVENT DATE: 20111202
